FAERS Safety Report 19473608 (Version 2)
Quarter: 2021Q3

REPORT INFORMATION
  Report Type: Report from Study
  Country: GB (occurrence: GB)
  Receive Date: 20210629
  Receipt Date: 20210729
  Transmission Date: 20211014
  Serious: Yes (Other)
  Sender: FDA-Public Use
  Company Number: GB-SEAGEN-2021SGN03434

PATIENT
  Age: 52 Year
  Sex: Female

DRUGS (4)
  1. BRENTUXIMAB VEDOTIN?MPI [Suspect]
     Active Substance: BRENTUXIMAB VEDOTIN
     Indication: TP53 GENE MUTATION
     Dosage: UNK
     Route: 065
  2. BRENTUXIMAB VEDOTIN?MPI [Suspect]
     Active Substance: BRENTUXIMAB VEDOTIN
     Indication: ANAPLASTIC LARGE CELL LYMPHOMA T- AND NULL-CELL TYPES
  3. BRENTUXIMAB VEDOTIN?MPI [Suspect]
     Active Substance: BRENTUXIMAB VEDOTIN
     Indication: TURNER^S SYNDROME
  4. BRENTUXIMAB VEDOTIN?MPI [Suspect]
     Active Substance: BRENTUXIMAB VEDOTIN
     Indication: MYELODYSPLASTIC SYNDROME

REACTIONS (2)
  - Hodgkin^s disease recurrent [Not Recovered/Not Resolved]
  - Pneumonitis [Unknown]
